FAERS Safety Report 5972492-8 (Version None)
Quarter: 2008Q4

REPORT INFORMATION
  Report Type: 
  Country: None (occurrence: None)
  Receive Date: 20081201
  Receipt Date: 20081126
  Transmission Date: 20090506
  Serious: Yes (Other)
  Sender: FDA-Public Use
  Company Number: A0758328A

PATIENT
  Age: 61 Year
  Sex: Female

DRUGS (5)
  1. COREG CR [Suspect]
     Indication: HYPERTENSION
     Dosage: 80MG PER DAY
     Route: 048
     Dates: start: 20081101
  2. PROTONIX [Concomitant]
  3. LIPITOR [Concomitant]
  4. AZOR [Concomitant]
  5. AVANDIA [Concomitant]

REACTIONS (2)
  - GINGIVAL BLEEDING [None]
  - RECTAL HAEMORRHAGE [None]
